FAERS Safety Report 11849360 (Version 2)
Quarter: 2016Q1

REPORT INFORMATION
  Report Type: Spontaneous
  Country: DE (occurrence: DE)
  Receive Date: 20151218
  Receipt Date: 20160106
  Transmission Date: 20160526
  Serious: Yes (Other)
  Sender: FDA-Public Use
  Company Number: DE-MYLANLABS-2015M1045264

PATIENT

DRUGS (1)
  1. FASTJEKT [Suspect]
     Active Substance: EPINEPHRINE
     Indication: PRODUCT USED FOR UNKNOWN INDICATION
     Dates: start: 20151209

REACTIONS (7)
  - Injury associated with device [Recovered/Resolved]
  - Injection site swelling [Recovered/Resolved]
  - Injection site haematoma [Not Recovered/Not Resolved]
  - Cardiovascular insufficiency [Recovered/Resolved]
  - Accidental exposure to product [Recovered/Resolved]
  - Injection site ischaemia [Recovered/Resolved]
  - Injection site discolouration [Recovered/Resolved]

NARRATIVE: CASE EVENT DATE: 20151209
